FAERS Safety Report 9884340 (Version 1)
Quarter: 2014Q1

REPORT INFORMATION
  Report Type: Spontaneous
  Country: US (occurrence: None)
  Receive Date: 20140207
  Receipt Date: 20140207
  Transmission Date: 20141002
  Serious: No
  Sender: FDA-Public Use
  Company Number: None

PATIENT
  Age: 68 Year
  Sex: Female
  Weight: 49.9 kg

DRUGS (8)
  1. ALENDRONATE SODIUM [Suspect]
     Indication: OSTEOPENIA
     Route: 048
     Dates: start: 20130601, end: 20131213
  2. ALENDRONATE SODIUM [Suspect]
     Indication: OSTEOPOROSIS
     Route: 048
     Dates: start: 20130601, end: 20131213
  3. EVISTA [Concomitant]
  4. ARMOUR THYROID [Concomitant]
  5. PREMARIN [Concomitant]
  6. LOW DOSE ASPIRIN [Concomitant]
  7. VITAMIN D [Concomitant]
  8. FISH OIL [Concomitant]

REACTIONS (19)
  - Foreign body [None]
  - Cough [None]
  - Choking [None]
  - Pain [None]
  - Throat irritation [None]
  - Dyspepsia [None]
  - Aspiration [None]
  - Infection [None]
  - Body temperature increased [None]
  - Pharyngeal oedema [None]
  - Oropharyngeal pain [None]
  - Aphonia [None]
  - Decreased appetite [None]
  - Food intolerance [None]
  - Trismus [None]
  - Abdominal pain upper [None]
  - Dysphonia [None]
  - Increased upper airway secretion [None]
  - Dysphonia [None]
